FAERS Safety Report 6292996-0 (Version None)
Quarter: 2009Q3

REPORT INFORMATION
  Report Type: 
  Country: None (occurrence: None)
  Receive Date: 20090731
  Receipt Date: 20090728
  Transmission Date: 20100115
  Serious: Yes (Other)
  Sender: FDA-Public Use
  Company Number: US-MERCK-0907USA00420

PATIENT
  Age: 8 Year
  Sex: Male
  Weight: 26 kg

DRUGS (3)
  1. SINGULAIR [Suspect]
     Indication: ASTHMA
     Route: 048
     Dates: start: 20060101, end: 20090101
  2. SEREVENT [Concomitant]
     Route: 065
  3. ADDERALL TABLETS [Concomitant]
     Route: 065

REACTIONS (3)
  - AGGRESSION [None]
  - BEREAVEMENT REACTION [None]
  - SUICIDAL IDEATION [None]
